FAERS Safety Report 6773361-6 (Version None)
Quarter: 2010Q2

REPORT INFORMATION
  Report Type: 
  Country: None (occurrence: None)
  Receive Date: 20100616
  Receipt Date: 20100607
  Transmission Date: 20101027
  Serious: Yes (Hospitalization)
  Sender: FDA-Public Use
  Company Number: DE-ABBOTT-10P-062-0649976-00

PATIENT
  Sex: Female

DRUGS (2)
  1. HUMIRA [Suspect]
     Indication: RHEUMATOID ARTHRITIS
     Dates: start: 20080315
  2. METHOTREXATE [Suspect]
     Indication: RHEUMATOID ARTHRITIS
     Dates: start: 20090301, end: 20091201

REACTIONS (1)
  - RHEUMATOID ARTHRITIS [None]
